FAERS Safety Report 9200321 (Version 2)
Quarter: 2013Q2

REPORT INFORMATION
  Report Type: Report from Study
  Country: CA (occurrence: CA)
  Receive Date: 20130329
  Receipt Date: 20130411
  Transmission Date: 20140414
  Serious: Yes (Hospitalization, Other)
  Sender: FDA-Public Use
  Company Number: CA-ABBOTT-13P-028-1068631-00

PATIENT
  Age: 42 Year
  Sex: Male
  Weight: 80.36 kg

DRUGS (4)
  1. KALETRA TABLETS 200/50 [Suspect]
     Indication: ANTIRETROVIRAL THERAPY
     Dosage: 2 TABS OF 200MG/50MG
     Route: 048
     Dates: start: 2008
  2. CELEXA [Concomitant]
     Indication: DEPRESSION
     Route: 048
  3. IMODIUM [Concomitant]
     Indication: DIARRHOEA
     Route: 048
  4. PSYLLIUM [Concomitant]
     Indication: DIARRHOEA
     Route: 048

REACTIONS (3)
  - Pulmonary embolism [Recovered/Resolved]
  - Pulmonary embolism [Recovering/Resolving]
  - Pleuritic pain [Recovering/Resolving]
